FAERS Safety Report 8833922 (Version 1)
Quarter: 2012Q4

REPORT INFORMATION
  Report Type: Report from Study
  Country: AU (occurrence: AU)
  Receive Date: 20121010
  Receipt Date: 20121010
  Transmission Date: 20130627
  Serious: Yes (Hospitalization)
  Sender: FDA-Public Use
  Company Number: AU-VERTEX PHARMACEUTICAL INC.-2012-022678

PATIENT
  Sex: Male

DRUGS (4)
  1. INCIVO [Suspect]
     Indication: PRODUCT USED FOR UNKNOWN INDICATION
     Dosage: 750 mg, every 3 days
     Route: 048
  2. PEGINTERFERON ALFA-2B [Concomitant]
     Dosage: UNK, qw
     Route: 065
  3. RIBAVIRIN [Concomitant]
     Dosage: 1200 mg, qd
     Route: 065
  4. RIBAVIRIN [Concomitant]
     Dosage: 200 mg, qod
     Route: 065

REACTIONS (1)
  - Renal failure acute [Recovered/Resolved]
